FAERS Safety Report 6855985-0 (Version None)
Quarter: 2010Q3

REPORT INFORMATION
  Report Type: 
  Country: None (occurrence: None)
  Receive Date: 20100716
  Receipt Date: 20100716
  Transmission Date: 20110219
  Serious: Yes (Disabling)
  Sender: FDA-Public Use
  Company Number: None

PATIENT
  Age: 47 Year
  Sex: Female
  Weight: 81.6475 kg

DRUGS (2)
  1. SPIRIVA [Suspect]
     Indication: DYSPNOEA
     Dosage: INHALE ONE PUFF ONE PER DAY
     Dates: start: 20090901, end: 20100525
  2. SPIRIVA [Suspect]
     Indication: WHEEZING
     Dosage: INHALE ONE PUFF ONE PER DAY
     Dates: start: 20090901, end: 20100525

REACTIONS (2)
  - INTRAOCULAR PRESSURE INCREASED [None]
  - VISUAL ACUITY REDUCED [None]
